FAERS Safety Report 5624240-9 (Version None)
Quarter: 2008Q1

REPORT INFORMATION
  Report Type: 
  Country: None (occurrence: None)
  Receive Date: 20080213
  Receipt Date: 20080207
  Transmission Date: 20080703
  Serious: Yes (Death)
  Sender: FDA-Public Use
  Company Number: PHBS2008BR01941

PATIENT
  Sex: Male

DRUGS (1)
  1. LEPONEX [Suspect]
     Route: 065

REACTIONS (2)
  - DEATH [None]
  - WEIGHT INCREASED [None]
